FAERS Safety Report 5469452-2 (Version None)
Quarter: 2007Q3

REPORT INFORMATION
  Report Type: 
  Country: None (occurrence: None)
  Receive Date: 20070925
  Receipt Date: 20070925
  Transmission Date: 20080115
  Serious: No
  Sender: FDA-Public Use
  Company Number: None

PATIENT
  Sex: Female
  Weight: 61.1 kg

DRUGS (3)
  1. MYLOTARG [Suspect]
     Dosage: 9 MG
  2. DAUNORUBICIN [Suspect]
     Dosage: 71 MG
  3. CYTARABINE [Suspect]
     Dosage: 157 MG

REACTIONS (10)
  - ABDOMINAL DISTENSION [None]
  - ACUTE MYELOID LEUKAEMIA [None]
  - ALANINE AMINOTRANSFERASE INCREASED [None]
  - ASCITES [None]
  - ASPARTATE AMINOTRANSFERASE INCREASED [None]
  - BLOOD ALKALINE PHOSPHATASE INCREASED [None]
  - BLOOD BILIRUBIN INCREASED [None]
  - RENAL FAILURE ACUTE [None]
  - TRANSPLANT [None]
  - VENOOCCLUSIVE DISEASE [None]
